FAERS Safety Report 10036500 (Version 1)
Quarter: 2014Q1

REPORT INFORMATION
  Report Type: Spontaneous
  Country: AU (occurrence: AU)
  Receive Date: 20140326
  Receipt Date: 20140326
  Transmission Date: 20141002
  Serious: Yes (Other)
  Sender: FDA-Public Use
  Company Number: AU-AMGEN-AUSSP2014020054

PATIENT
  Age: 83 Year
  Sex: Female
  Weight: 82 kg

DRUGS (4)
  1. PROLIA [Suspect]
     Indication: OSTEOPOROTIC FRACTURE
     Dosage: 60 MG, UNK
     Route: 065
     Dates: start: 20130107
  2. FELODUR [Concomitant]
     Indication: HYPERTENSION
     Dosage: 5 MG, UNK
     Route: 065
     Dates: start: 2011
  3. KARVEZIDE [Concomitant]
     Indication: HYPERTENSION
     Dosage: 300/12.5 MG, UNK
     Route: 065
  4. LIPITOR [Concomitant]
     Indication: HYPERCHOLESTEROLAEMIA
     Dosage: 40 MG, UNK
     Route: 065

REACTIONS (5)
  - Blister [Not Recovered/Not Resolved]
  - Bloody discharge [Not Recovered/Not Resolved]
  - Skin lesion [Not Recovered/Not Resolved]
  - Rash [Not Recovered/Not Resolved]
  - Erythema [Not Recovered/Not Resolved]
